FAERS Safety Report 7762638-3 (Version None)
Quarter: 2011Q3

REPORT INFORMATION
  Report Type: 
  Country: None (occurrence: None)
  Receive Date: 20110920
  Receipt Date: 20110913
  Transmission Date: 20111222
  Serious: Yes (Other)
  Sender: FDA-Public Use
  Company Number: BR-GLAXOSMITHKLINE-B0748467A

PATIENT
  Sex: Male
  Weight: 67 kg

DRUGS (5)
  1. ERLOTINIB HYDROCHLORIDE [Concomitant]
     Indication: CHEMOTHERAPY
     Route: 048
     Dates: start: 20110801
  2. ISONIAZID [Concomitant]
     Indication: ANTIBIOTIC PROPHYLAXIS
     Dosage: 1TAB TWICE PER DAY
     Route: 048
  3. PROPAFENONE HCL [Suspect]
     Indication: ARRHYTHMIA
     Dosage: 300MG TWICE PER DAY
     Route: 048
     Dates: start: 20030101
  4. DOMPERIDONE MALEATE [Concomitant]
     Indication: ILL-DEFINED DISORDER
     Route: 065
     Dates: start: 20110912
  5. FOLIC ACID [Concomitant]
     Route: 048
     Dates: start: 20090101

REACTIONS (4)
  - LUNG NEOPLASM MALIGNANT [None]
  - PNEUMONIA [None]
  - COUGH [None]
  - METASTASES TO LUNG [None]
